FAERS Safety Report 20815602 (Version 1)
Quarter: 2022Q2

REPORT INFORMATION
  Report Type: Spontaneous
  Country: US (occurrence: US)
  Receive Date: 20220511
  Receipt Date: 20220511
  Transmission Date: 20220720
  Serious: No
  Sender: FDA-Public Use
  Company Number: US-PFIZER INC-202101341363

PATIENT
  Age: 67 Year
  Sex: Female

DRUGS (1)
  1. LATANOPROST [Suspect]
     Active Substance: LATANOPROST
     Indication: Glaucoma
     Dosage: ONE DROP IN BOTH EYES AT BEDTIME
     Route: 047
     Dates: start: 2020

REACTIONS (2)
  - Eye irritation [Recovered/Resolved]
  - Eye pain [Unknown]
